FAERS Safety Report 8895622 (Version 1)
Quarter: 2012Q4

REPORT INFORMATION
  Report Type: 
  Country: US (occurrence: US)
  Receive Date: 20121107
  Receipt Date: 20121107
  Transmission Date: 20130627
  Serious: No
  Sender: FDA-Public Use
  Company Number: US-009507513-1211USA002980

PATIENT
  Age: 77 Year
  Sex: Male

DRUGS (1)
  1. DULERA [Suspect]
     Dosage: 100/5mcg/unspecified frequencty

REACTIONS (2)
  - Diarrhoea [Recovered/Resolved]
  - Abnormal loss of weight [Recovered/Resolved]
